FAERS Safety Report 22393149 (Version 1)
Quarter: 2023Q2

REPORT INFORMATION
  Report Type: Spontaneous
  Country: CN (occurrence: CN)
  Receive Date: 20230601
  Receipt Date: 20230601
  Transmission Date: 20230722
  Serious: Yes (Death, Other)
  Sender: FDA-Public Use
  Company Number: CN-TEVA-2023-CN-2891978

PATIENT
  Age: 86 Year
  Sex: Male

DRUGS (4)
  1. CLOPIDOGREL [Suspect]
     Active Substance: CLOPIDOGREL BISULFATE
     Indication: Cerebral infarction
     Dosage: 75 MILLIGRAM DAILY;
     Route: 048
  2. HERBALS\PANAX NOTOGINSENG ROOT EXTRACT [Concomitant]
     Active Substance: HERBALS\PANAX NOTOGINSENG ROOT EXTRACT
     Indication: Product used for unknown indication
     Dosage: 450 MILLIGRAM DAILY;
     Route: 041
  3. ATORVASTATIN [Concomitant]
     Active Substance: ATORVASTATIN
     Indication: Cerebral infarction
     Dosage: 10 MILLIGRAM DAILY;
     Route: 048
  4. CATTLE ENCEPHALON GLYCOSIDE AND IGNOTIN [Concomitant]
     Indication: Product used for unknown indication
     Dosage: 5 MILLIGRAM DAILY;
     Route: 041

REACTIONS (4)
  - Thrombotic thrombocytopenic purpura [Fatal]
  - Respiratory failure [Fatal]
  - Circulatory collapse [Fatal]
  - Gingival bleeding [Unknown]
